FAERS Safety Report 13479272 (Version 1)
Quarter: 2017Q2

REPORT INFORMATION
  Report Type: Spontaneous
  Country: FR (occurrence: FR)
  Receive Date: 20170425
  Receipt Date: 20170425
  Transmission Date: 20170830
  Serious: Yes (Hospitalization)
  Sender: FDA-Public Use
  Company Number: FR-TEVA-2016-001032

PATIENT
  Age: 42 Year
  Sex: Male

DRUGS (9)
  1. CACIT D3 [Suspect]
     Active Substance: CALCIUM\CHOLECALCIFEROL
     Indication: VITAMIN SUPPLEMENTATION
     Dosage: 1 DOSAGE FORMS DAILY; 1 DOSAGE FORM DAILY
     Route: 048
     Dates: start: 20160303
  2. OCTAGAM IMMUNE GLOBULIN (HUMAN) [Suspect]
     Active Substance: HUMAN IMMUNOGLOBULIN G
     Indication: DERMATOMYOSITIS
     Dosage: 75 GRAM DAILY; 75 G IN 1 SECONDS, SECOND COURSE
     Route: 042
     Dates: start: 20160413, end: 20160414
  3. OCTAGAM IMMUNE GLOBULIN (HUMAN) [Suspect]
     Active Substance: HUMAN IMMUNOGLOBULIN G
     Dosage: 75 GRAM DAILY; 75G IN 1 SECONDS, FIRST COURSE
     Route: 042
     Dates: start: 20160320, end: 20160321
  4. PREDNISONE. [Suspect]
     Active Substance: PREDNISONE
     Indication: DERMATOMYOSITIS
     Dosage: 65 MILLIGRAM DAILY;
     Route: 048
     Dates: start: 20160303
  5. METHOTREXATE. [Suspect]
     Active Substance: METHOTREXATE
     Indication: DERMATOMYOSITIS
     Route: 048
     Dates: start: 20160316
  6. INEXIUM [Suspect]
     Active Substance: ESOMEPRAZOLE
     Dosage: 40 MILLIGRAM DAILY;
     Route: 048
     Dates: start: 201603
  7. OXYCONTIN [Suspect]
     Active Substance: OXYCODONE HYDROCHLORIDE
     Indication: PAIN
     Dosage: 20 MILLIGRAM DAILY; 10 MG, TWICE DAILY
     Route: 048
     Dates: start: 201603
  8. SPECIAFOLDINE 5MG [Suspect]
     Active Substance: FOLIC ACID
     Indication: VITAMIN SUPPLEMENTATION
     Route: 048
     Dates: start: 201603
  9. KALEORID LP 1000MG [Suspect]
     Active Substance: POTASSIUM CHLORIDE
     Indication: PROPHYLAXIS
     Dosage: 2000 MILLIGRAM DAILY; FORM OF ADMINISTRATION: EXTENDED-RELEASE TABLET
     Route: 048
     Dates: start: 201603

REACTIONS (1)
  - Deep vein thrombosis [Recovered/Resolved]

NARRATIVE: CASE EVENT DATE: 20160427
